FAERS Safety Report 6715715-X (Version None)
Quarter: 2010Q2

REPORT INFORMATION
  Report Type: 
  Country: None (occurrence: None)
  Receive Date: 20100506
  Receipt Date: 20100506
  Transmission Date: 20101027
  Serious: Yes (Other)
  Sender: FDA-Public Use
  Company Number: None

PATIENT
  Age: 6 Year
  Sex: Female
  Weight: 26.3086 kg

DRUGS (2)
  1. CHILDREN'S TYLENOL PLUS COLD + STUFFY NOSE ORAL SUSPENSION GRAPE FLAVO [Suspect]
     Indication: NASAL CONGESTION
     Dosage: 2 TSP EVERY 4 HOURS PO
     Route: 048
     Dates: start: 20100303, end: 20100304
  2. CHILDREN'S TYLENOL PLUS COLD + STUFFY NOSE ORAL SUSPENSION GRAPE FLAVO [Suspect]
     Indication: PYREXIA
     Dosage: 2 TSP EVERY 4 HOURS PO
     Route: 048
     Dates: start: 20100303, end: 20100304

REACTIONS (2)
  - DIARRHOEA [None]
  - VOMITING [None]
